FAERS Safety Report 15029333 (Version 3)
Quarter: 2019Q1

REPORT INFORMATION
  Report Type: Spontaneous
  Country: PT (occurrence: PT)
  Receive Date: 20180619
  Receipt Date: 20190102
  Transmission Date: 20190417
  Serious: Yes (Death, Hospitalization, Disabling, Other)
  Sender: FDA-Public Use
  Company Number: PT-ASTELLAS-2018US027765

PATIENT
  Sex: Female

DRUGS (2)
  1. ERLOTINIB [Suspect]
     Active Substance: ERLOTINIB
     Indication: NON-SMALL CELL LUNG CANCER
     Route: 048
     Dates: start: 20170118, end: 201808
  2. AVASTIN [Suspect]
     Active Substance: BEVACIZUMAB
     Indication: NON-SMALL CELL LUNG CANCER
     Route: 042
     Dates: start: 20170127, end: 20180413

REACTIONS (6)
  - Gliosis [Unknown]
  - Nervous system disorder [Unknown]
  - Cerebrovascular accident [Not Recovered/Not Resolved]
  - Pneumonia aspiration [Unknown]
  - Dysphagia [Unknown]
  - Proteinuria [Not Recovered/Not Resolved]

NARRATIVE: CASE EVENT DATE: 201711
